FAERS Safety Report 14282645 (Version 1)
Quarter: 2017Q4

REPORT INFORMATION
  Report Type: Report from Study
  Country: US (occurrence: US)
  Receive Date: 20171213
  Receipt Date: 20171213
  Transmission Date: 20180321
  Serious: Yes (Other)
  Sender: FDA-Public Use
  Company Number: US-JNJFOC-20170301101

PATIENT
  Age: 51 Year
  Sex: Male

DRUGS (7)
  1. IMBRUVICA [Suspect]
     Active Substance: IBRUTINIB
     Indication: CHRONIC LYMPHOCYTIC LEUKAEMIA
     Route: 048
     Dates: start: 20161212
  2. IMBRUVICA [Suspect]
     Active Substance: IBRUTINIB
     Indication: CHRONIC LYMPHOCYTIC LEUKAEMIA
     Route: 048
     Dates: start: 20161219
  3. XARELTO [Suspect]
     Active Substance: RIVAROXABAN
     Indication: PRODUCT USED FOR UNKNOWN INDICATION
  4. MORPHINE SULFATE. [Concomitant]
     Active Substance: MORPHINE SULFATE
     Indication: PAIN
  5. OXYCODONE [Concomitant]
     Active Substance: OXYCODONE
     Indication: PAIN
  6. TIZANIDINE. [Concomitant]
     Active Substance: TIZANIDINE
     Indication: MUSCLE SPASMS
  7. TOPIRAMATE. [Concomitant]
     Active Substance: TOPIRAMATE
     Indication: COMPLEX REGIONAL PAIN SYNDROME

REACTIONS (18)
  - Blood count abnormal [Not Recovered/Not Resolved]
  - Vitamin B12 deficiency [Unknown]
  - Contusion [Not Recovered/Not Resolved]
  - Influenza like illness [Recovering/Resolving]
  - Cardiac flutter [Not Recovered/Not Resolved]
  - White blood cell disorder [Recovered/Resolved]
  - Chills [Recovered/Resolved]
  - Diarrhoea [Not Recovered/Not Resolved]
  - Swelling [Unknown]
  - Post procedural haemorrhage [Unknown]
  - Drug dose omission [Recovered/Resolved]
  - Night sweats [Not Recovered/Not Resolved]
  - Rash erythematous [Not Recovered/Not Resolved]
  - Animal bite [Unknown]
  - Palpitations [Not Recovered/Not Resolved]
  - Basal cell carcinoma [Not Recovered/Not Resolved]
  - Chest discomfort [Not Recovered/Not Resolved]
  - Blood iron decreased [Not Recovered/Not Resolved]

NARRATIVE: CASE EVENT DATE: 201702
